FAERS Safety Report 4851200-8 (Version None)
Quarter: 2005Q4

REPORT INFORMATION
  Report Type: 
  Country: None (occurrence: None)
  Receive Date: 20051212
  Receipt Date: 20051102
  Transmission Date: 20060501
  Serious: Yes (Hospitalization)
  Sender: FDA-Public Use
  Company Number: PHBS2005US16207

PATIENT
  Age: 22 Year
  Sex: Female

DRUGS (6)
  1. LASIX [Concomitant]
  2. FLUID/ELECTROLYTE REPLACEMENT THERAPY [Concomitant]
     Route: 042
  3. MAGNESIUM [Concomitant]
     Dosage: UNK, UNK
     Route: 048
  4. PHOSPHORUS [Concomitant]
     Dosage: UNK, UNK
  5. PAMIDRONATE DISODIUM [Concomitant]
     Dosage: 30 MG, ONCE/SINGLE
     Route: 042
  6. MIACALCIN [Suspect]
     Dosage: UNK, UNK
     Route: 045

REACTIONS (2)
  - DRUG EXPOSURE DURING PREGNANCY [None]
  - PREMATURE LABOUR [None]
